FAERS Safety Report 10509573 (Version 1)
Quarter: 2014Q4

REPORT INFORMATION
  Report Type: Report from Study
  Country: IE (occurrence: IE)
  Receive Date: 20141010
  Receipt Date: 20141010
  Transmission Date: 20150528
  Serious: Yes (Death)
  Sender: FDA-Public Use
  Company Number: IE-AMGEN-IRLSL2014077557

PATIENT
  Age: 57 Year
  Sex: Male

DRUGS (8)
  1. LYRICA [Concomitant]
     Active Substance: PREGABALIN
     Dosage: UNK
  2. IBUPROFEN. [Concomitant]
     Active Substance: IBUPROFEN
     Dosage: UNK
  3. DUPHALAC [Concomitant]
     Active Substance: LACTULOSE
     Dosage: UNK
  4. CLONFOLIC [Concomitant]
     Dosage: UNK
  5. LOPRAZ [Concomitant]
     Dosage: UNK
  6. OXYNORM [Concomitant]
     Active Substance: OXYCODONE HYDROCHLORIDE
     Dosage: UNK
  7. NEULASTA [Suspect]
     Active Substance: PEGFILGRASTIM
     Indication: LUNG NEOPLASM MALIGNANT
     Dosage: 6MG/0.6MLS, POST CHEMO EVERY THREE WEEKS
     Route: 058
     Dates: start: 20140911
  8. BISOP [Concomitant]
     Dosage: UNK

REACTIONS (1)
  - Death [Fatal]

NARRATIVE: CASE EVENT DATE: 2014
